FAERS Safety Report 6807212-8 (Version None)
Quarter: 2010Q2

REPORT INFORMATION
  Report Type: 
  Country: None (occurrence: None)
  Receive Date: 20100629
  Receipt Date: 20080814
  Transmission Date: 20101027
  Serious: No
  Sender: FDA-Public Use
  Company Number: US-PFIZER INC-2008069119

PATIENT
  Sex: Female

DRUGS (2)
  1. TIKOSYN [Suspect]
  2. LEVAQUIN [Interacting]
     Dates: start: 20080801, end: 20080801

REACTIONS (2)
  - DRUG INTERACTION [None]
  - FEELING ABNORMAL [None]
